FAERS Safety Report 7269548-9 (Version None)
Quarter: 2011Q1

REPORT INFORMATION
  Report Type: 
  Country: None (occurrence: None)
  Receive Date: 20110202
  Receipt Date: 20110120
  Transmission Date: 20110831
  Serious: Yes (Hospitalization)
  Sender: FDA-Public Use
  Company Number: IN-SANOFI-AVENTIS-2011SA004160

PATIENT
  Age: 26 Day
  Sex: Male
  Weight: 4 kg

DRUGS (9)
  1. AMIKACIN [Concomitant]
     Indication: CONGENITAL INFECTION
     Route: 065
  2. I.V. SOLUTIONS [Concomitant]
     Indication: CONGENITAL INFECTION
     Route: 065
  3. OTHER ANALGESICS AND ANTIPYRETICS [Concomitant]
     Indication: SEPSIS
     Route: 065
  4. CHLOROQUINE PHOSPHATE [Suspect]
     Route: 048
  5. CEFTRIAXONE [Concomitant]
     Indication: SEPSIS
     Route: 065
  6. AMIKACIN [Concomitant]
     Indication: SEPSIS
     Route: 065
  7. CEFTRIAXONE [Concomitant]
     Indication: CONGENITAL INFECTION
     Route: 065
  8. OTHER ANALGESICS AND ANTIPYRETICS [Concomitant]
     Indication: CONGENITAL INFECTION
     Route: 065
  9. I.V. SOLUTIONS [Concomitant]
     Indication: SEPSIS
     Route: 065

REACTIONS (5)
  - DRUG INEFFECTIVE [None]
  - MALARIA [None]
  - CONGENITAL MALARIA [None]
  - PYREXIA [None]
  - HEPATOSPLENOMEGALY NEONATAL [None]
